FAERS Safety Report 4722023-5 (Version None)
Quarter: 2005Q3

REPORT INFORMATION
  Report Type: 
  Country: None (occurrence: None)
  Receive Date: 20050722
  Receipt Date: 20030507
  Transmission Date: 20060218
  Serious: Yes (Death, Hospitalization)
  Sender: FDA-Public Use
  Company Number: US-ROCHE-337466

PATIENT
  Age: 69 Year
  Sex: Male
  Weight: 67.8 kg

DRUGS (2)
  1. CAPECITABINE [Suspect]
     Dosage: INTERMITTENT THERAPY OF TREATMENT ON DAYS 1-14 EVERY 21 DAYS
     Route: 048
     Dates: start: 20030224
  2. OXALIPLATIN [Suspect]
     Route: 042
     Dates: start: 20030224

REACTIONS (16)
  - ACUTE RESPIRATORY DISTRESS SYNDROME [None]
  - ANOREXIA [None]
  - DEHYDRATION [None]
  - DEPRESSED LEVEL OF CONSCIOUSNESS [None]
  - DIARRHOEA [None]
  - DIZZINESS [None]
  - DYSPNOEA [None]
  - FATIGUE [None]
  - HAEMOGLOBIN DECREASED [None]
  - HYPERKALAEMIA [None]
  - HYPERNATRAEMIA [None]
  - HYPERURICAEMIA [None]
  - HYPOTENSION [None]
  - NAUSEA [None]
  - PLATELET DISORDER [None]
  - STOMATITIS [None]
